FAERS Safety Report 18726856 (Version 2)
Quarter: 2021Q1

REPORT INFORMATION
  Report Type: Spontaneous
  Country: US (occurrence: US)
  Receive Date: 20210111
  Receipt Date: 20210331
  Transmission Date: 20210419
  Serious: Yes (Other)
  Sender: FDA-Public Use
  Company Number: US-MYLANLABS-2021M1000685

PATIENT
  Age: 61 Year
  Sex: Female
  Weight: 70 kg

DRUGS (6)
  1. ESTRADIOL MYLAN [Suspect]
     Active Substance: ESTRADIOL
     Dosage: 0.5 PERCENT, BIWEEKLY
     Route: 067
  2. ELIQUIS [Concomitant]
     Active Substance: APIXABAN
     Dosage: UNK
  3. ESTRADIOL MYLAN [Suspect]
     Active Substance: ESTRADIOL
     Dosage: 0.5 MILLIGRAM, BIWEEKLY
     Route: 067
  4. ESTRADIOL MYLAN [Suspect]
     Active Substance: ESTRADIOL
     Dosage: UNK, BIWEEKLY
  5. ESTRADIOL MYLAN [Suspect]
     Active Substance: ESTRADIOL
     Dosage: 0.5 MILLIGRAM, BIWEEKLY
     Route: 067
  6. ESTRADIOL MYLAN [Suspect]
     Active Substance: ESTRADIOL
     Indication: VULVOVAGINAL DRYNESS
     Dosage: UNK
     Route: 067
     Dates: end: 201412

REACTIONS (3)
  - Device issue [Unknown]
  - Cerebrovascular accident [Unknown]
  - Device difficult to use [Unknown]

NARRATIVE: CASE EVENT DATE: 201412
